FAERS Safety Report 21909778 (Version 1)
Quarter: 2023Q1

REPORT INFORMATION
  Report Type: Spontaneous
  Country: IT (occurrence: IT)
  Receive Date: 20230125
  Receipt Date: 20230125
  Transmission Date: 20230417
  Serious: Yes (Death, Other)
  Sender: FDA-Public Use
  Company Number: IT-NEUROCRINE BIOSCIENCES INC.-2023NBI00576

PATIENT

DRUGS (1)
  1. ONGENTYS [Suspect]
     Active Substance: OPICAPONE
     Indication: Parkinson^s disease
     Route: 065

REACTIONS (7)
  - Death [Fatal]
  - Hallucination [Unknown]
  - Disease progression [Unknown]
  - Behaviour disorder [Unknown]
  - Dyskinesia [Unknown]
  - Adverse drug reaction [Unknown]
  - Drug ineffective [Unknown]
